FAERS Safety Report 6422174-3 (Version None)
Quarter: 2009Q4

REPORT INFORMATION
  Report Type: 
  Country: None (occurrence: None)
  Receive Date: 20091030
  Receipt Date: 20091019
  Transmission Date: 20100525
  Serious: Yes (Hospitalization)
  Sender: FDA-Public Use
  Company Number: PHHY2009JP37509

PATIENT
  Sex: Male
  Weight: 57 kg

DRUGS (3)
  1. ZOMETA [Suspect]
     Indication: METASTASES TO BONE
     Dosage: 4 MG, QMO
     Route: 042
     Dates: start: 20080926, end: 20090513
  2. DECADRON [Suspect]
  3. DOCETAXEL [Concomitant]
     Indication: PROSTATE CANCER
     Route: 042

REACTIONS (10)
  - ABSCESS JAW [None]
  - BONE DISORDER [None]
  - CELLULITIS [None]
  - CONDITION AGGRAVATED [None]
  - INFLAMMATION [None]
  - OSTEOMYELITIS [None]
  - OSTEONECROSIS [None]
  - PAIN [None]
  - PURULENT DISCHARGE [None]
  - TOOTH EXTRACTION [None]
